FAERS Safety Report 20704773 (Version 2)
Quarter: 2022Q2

REPORT INFORMATION
  Report Type: Spontaneous
  Country: IN (occurrence: IN)
  Receive Date: 20220413
  Receipt Date: 20220531
  Transmission Date: 20220721
  Serious: Yes (Congenital Anomaly, Other)
  Sender: FDA-Public Use
  Company Number: IN-MLMSERVICE-20220325-3449118-1

PATIENT
  Age: 8 Month
  Sex: Male
  Weight: 3.5 kg

DRUGS (6)
  1. OLANZAPINE [Suspect]
     Active Substance: OLANZAPINE
     Indication: Schizophrenia
     Dosage: UNK, UNKNOWN
     Route: 064
  2. OLANZAPINE [Suspect]
     Active Substance: OLANZAPINE
     Dosage: 10 MG, UNKNOWN
     Route: 063
  3. CALCIUM [Concomitant]
     Active Substance: CALCIUM
     Indication: Supplementation therapy
     Dosage: UNK, UNKNOWN
     Route: 064
  4. IRON [Concomitant]
     Active Substance: IRON
     Indication: Supplementation therapy
     Dosage: UNK, UNKNOWN
     Route: 064
  5. FOLIC ACID [Concomitant]
     Active Substance: FOLIC ACID
     Indication: Supplementation therapy
     Dosage: UNK, UNKNOWN
     Route: 064
  6. TETANUS TOXOIDS [Concomitant]
     Active Substance: TETANUS TOXOIDS
     Dosage: UNK, UNKNOWN
     Route: 064

REACTIONS (2)
  - Talipes [Unknown]
  - Sedation [Unknown]
